FAERS Safety Report 7764093-6 (Version None)
Quarter: 2011Q3

REPORT INFORMATION
  Report Type: 
  Country: None (occurrence: None)
  Receive Date: 20110921
  Receipt Date: 20110913
  Transmission Date: 20111222
  Serious: Yes (Other)
  Sender: FDA-Public Use
  Company Number: US-JNJFOC-20110905829

PATIENT
  Age: 31 Year
  Sex: Female

DRUGS (4)
  1. LATUDA [Concomitant]
     Route: 048
  2. ADDERALL 5 [Concomitant]
     Route: 048
  3. INVEGA SUSTENNA [Suspect]
     Indication: PRODUCT USED FOR UNKNOWN INDICATION
     Route: 030
     Dates: start: 20110401
  4. AMBIEN [Concomitant]
     Indication: SLEEP DISORDER
     Route: 048

REACTIONS (2)
  - AMENORRHOEA [None]
  - WEIGHT INCREASED [None]
